FAERS Safety Report 4562388-0 (Version None)
Quarter: 2005Q1

REPORT INFORMATION
  Report Type: 
  Country: None (occurrence: None)
  Receive Date: 20050127
  Receipt Date: 20040106
  Transmission Date: 20050727
  Serious: No
  Sender: FDA-Public Use
  Company Number: US-BRISTOL-MYERS SQUIBB COMPANY-12471587

PATIENT
  Sex: Male
  Weight: 27 kg

DRUGS (2)
  1. KENALOG [Suspect]
     Indication: UPPER RESPIRATORY TRACT INFECTION
     Route: 030
     Dates: start: 20030928, end: 20030928
  2. SINGULAIR [Concomitant]

REACTIONS (2)
  - INJECTION SITE DISCOLOURATION [None]
  - INJECTION SITE REACTION [None]
